FAERS Safety Report 13911326 (Version 4)
Quarter: 2017Q3

REPORT INFORMATION
  Report Type: Report from Study
  Country: CA (occurrence: CA)
  Receive Date: 20170828
  Receipt Date: 20170925
  Transmission Date: 20171127
  Serious: Yes (Hospitalization, Other)
  Sender: FDA-Public Use
  Company Number: CA-JNJFOC-20170820429

PATIENT
  Age: 53 Year
  Sex: Female
  Weight: 57 kg

DRUGS (8)
  1. REMICADE [Suspect]
     Active Substance: INFLIXIMAB
     Indication: CROHN^S DISEASE
     Route: 042
     Dates: start: 201707
  2. REMICADE [Suspect]
     Active Substance: INFLIXIMAB
     Indication: COLITIS ULCERATIVE
     Route: 042
     Dates: start: 20170918
  3. REMICADE [Suspect]
     Active Substance: INFLIXIMAB
     Indication: COLITIS ULCERATIVE
     Route: 042
     Dates: start: 20170907, end: 20170912
  4. REMICADE [Suspect]
     Active Substance: INFLIXIMAB
     Indication: COLITIS ULCERATIVE
     Route: 042
  5. REMICADE [Suspect]
     Active Substance: INFLIXIMAB
     Indication: CROHN^S DISEASE
     Route: 042
  6. REMICADE [Suspect]
     Active Substance: INFLIXIMAB
     Indication: COLITIS ULCERATIVE
     Route: 042
     Dates: start: 201707
  7. REMICADE [Suspect]
     Active Substance: INFLIXIMAB
     Indication: CROHN^S DISEASE
     Route: 042
     Dates: start: 20170907, end: 20170912
  8. REMICADE [Suspect]
     Active Substance: INFLIXIMAB
     Indication: CROHN^S DISEASE
     Route: 042
     Dates: start: 20170918

REACTIONS (9)
  - Nausea [Unknown]
  - Stress [Not Recovered/Not Resolved]
  - Heart rate increased [Unknown]
  - Hypertension [Unknown]
  - Vomiting [Unknown]
  - Hepatic pain [Unknown]
  - Weight decreased [Unknown]
  - Dehydration [Recovered/Resolved]
  - Diarrhoea [Recovering/Resolving]

NARRATIVE: CASE EVENT DATE: 2017
